FAERS Safety Report 19322360 (Version 1)
Quarter: 2021Q2

REPORT INFORMATION
  Report Type: Spontaneous
  Country: FR (occurrence: FR)
  Receive Date: 20210528
  Receipt Date: 20210528
  Transmission Date: 20210717
  Serious: Yes (Hospitalization)
  Sender: FDA-Public Use
  Company Number: FR-TEVA-2021-FR-1915468

PATIENT
  Age: 83 Year
  Sex: Female
  Weight: 63 kg

DRUGS (4)
  1. PERINDOPRIL [Concomitant]
     Active Substance: PERINDOPRIL
     Indication: HYPERTENSION
     Dosage: 8 MG , THERAPY START DATE : NASK
  2. COMIRNATY [Suspect]
     Active Substance: TOZINAMERAN
     Indication: COVID-19 IMMUNISATION
     Dosage: 1 DF
     Route: 030
     Dates: start: 20210315, end: 20210315
  3. AMLODIPINE [Concomitant]
     Active Substance: AMLODIPINE BESYLATE
     Indication: HYPERTENSION
     Dosage: 10 MG , THERAPY START DATE : NASK
  4. AMOXICILLINE [Suspect]
     Active Substance: AMOXICILLIN
     Indication: ESCHERICHIA PYELONEPHRITIS
     Dosage: 1 TAB OF 1G MORNING, NOON, EVENING , UNIT DOSE : 3 G
     Route: 048
     Dates: start: 20210419, end: 20210424

REACTIONS (1)
  - Immune thrombocytopenia [Recovering/Resolving]

NARRATIVE: CASE EVENT DATE: 20210423
